FAERS Safety Report 13887337 (Version 1)
Quarter: 2017Q3

REPORT INFORMATION
  Report Type: Spontaneous
  Country: US (occurrence: US)
  Receive Date: 20170821
  Receipt Date: 20170821
  Transmission Date: 20171127
  Serious: No
  Sender: FDA-Public Use
  Company Number: US-ROCHE-800003

PATIENT
  Sex: Female

DRUGS (11)
  1. CHOLECALCIFEROL [Concomitant]
     Active Substance: CHOLECALCIFEROL
     Dosage: FREQUENCY: EVERY DAY
     Route: 048
  2. ACYCLOVIR. [Concomitant]
     Active Substance: ACYCLOVIR
     Route: 048
  3. NABUMETONE. [Concomitant]
     Active Substance: NABUMETONE
     Dosage: 1000 MG BY MOUTH EVERY DAY.
     Route: 048
  4. HYDROXYCHLOROQUINE [Concomitant]
     Active Substance: HYDROXYCHLOROQUINE
     Route: 048
  5. TOCILIZUMAB. [Concomitant]
     Active Substance: TOCILIZUMAB
     Dosage: DOSE: 20 MG/ML, EVERY FOUR WEEKS INITIAL DOSE 4 MG/KG THEREAFTER 8 MG/KG.
     Route: 042
  6. TRIAMCINOLONE [Concomitant]
     Active Substance: TRIAMCINOLONE
     Dosage: APPLY TOPICALLY 3 TIMES A DAY.
     Route: 061
  7. CALCIUM/VITAMIN D [Concomitant]
     Active Substance: CALCIUM\VITAMIN D
     Route: 048
  8. DIFLUCAN [Concomitant]
     Active Substance: FLUCONAZOLE
     Dosage: FREQUENCY: ONE TABLET NOW AND REPEAT IN 3 DAYS
     Route: 048
  9. FOLIC ACID. [Concomitant]
     Active Substance: FOLIC ACID
     Dosage: ONE MG BY MOUTH EVERY DAY
     Route: 048
  10. ACTEMRA [Suspect]
     Active Substance: TOCILIZUMAB
     Indication: RHEUMATOID ARTHRITIS
     Dosage: DOSE FORM: INFUSION
     Route: 042
  11. METHOTREXATE. [Concomitant]
     Active Substance: METHOTREXATE
     Route: 048

REACTIONS (1)
  - Bilirubin conjugated [Unknown]
